FAERS Safety Report 4336351-9 (Version None)
Quarter: 2004Q2

REPORT INFORMATION
  Report Type: 
  Country: None (occurrence: None)
  Receive Date: 20040409
  Receipt Date: 20040409
  Transmission Date: 20050107
  Serious: Yes (Hospitalization)
  Sender: FDA-Public Use
  Company Number: None

PATIENT
  Age: 61 Year
  Sex: Female
  Weight: 74.8435 kg

DRUGS (2)
  1. FLUOROURACIL [Suspect]
  2. MITOMYCIN-C BULK POWDER [Suspect]

REACTIONS (2)
  - ABDOMINAL PAIN [None]
  - ENTERITIS [None]
